FAERS Safety Report 13547278 (Version 4)
Quarter: 2017Q4

REPORT INFORMATION
  Report Type: Spontaneous
  Country: US (occurrence: US)
  Receive Date: 20170515
  Receipt Date: 20171227
  Transmission Date: 20180320
  Serious: Yes (Hospitalization)
  Sender: FDA-Public Use
  Company Number: US-ACTELION-A-US2016-147583

PATIENT
  Age: 54 Year
  Sex: Female
  Weight: 53.61 kg

DRUGS (2)
  1. VELETRI [Suspect]
     Active Substance: EPOPROSTENOL
     Dosage: UNK
     Route: 042
     Dates: start: 20150121
  2. VELETRI [Suspect]
     Active Substance: EPOPROSTENOL
     Indication: PULMONARY ARTERIAL HYPERTENSION
     Dosage: 41 NG/KG, PER MIN
     Route: 042

REACTIONS (11)
  - Troponin increased [Unknown]
  - Pulmonary arterial hypertension [Unknown]
  - Nausea [Unknown]
  - Headache [Unknown]
  - Influenza [Unknown]
  - Malaise [Unknown]
  - Dyspnoea [Unknown]
  - Vomiting [Unknown]
  - Pneumonia [Unknown]
  - Dehydration [Unknown]
  - Rash [Unknown]

NARRATIVE: CASE EVENT DATE: 201612
